FAERS Safety Report 16176603 (Version 1)
Quarter: 2019Q2

REPORT INFORMATION
  Report Type: Spontaneous
  Country: JP (occurrence: JP)
  Receive Date: 20190409
  Receipt Date: 20190409
  Transmission Date: 20190711
  Serious: Yes (Other)
  Sender: FDA-Public Use
  Company Number: JP-MYLANLABS-2019M1030799

PATIENT
  Age: 64 Year
  Sex: Female

DRUGS (4)
  1. ERYTHROCIN [Suspect]
     Active Substance: ERYTHROMYCIN LACTOBIONATE
     Indication: MYCOBACTERIAL INFECTION
     Route: 065
     Dates: start: 2015, end: 2015
  2. CLARITHROMYCIN. [Suspect]
     Active Substance: CLARITHROMYCIN
     Indication: MYCOBACTERIAL INFECTION
     Route: 065
     Dates: start: 2015, end: 2015
  3. RIFAMPICIN [Suspect]
     Active Substance: RIFAMPIN
     Indication: MYCOBACTERIAL INFECTION
     Route: 065
     Dates: start: 2015, end: 2015
  4. ETHAMBUTOL [Suspect]
     Active Substance: ETHAMBUTOL HYDROCHLORIDE
     Indication: MYCOBACTERIAL INFECTION
     Route: 065
     Dates: start: 2015, end: 2015

REACTIONS (5)
  - Decreased appetite [Unknown]
  - Diarrhoea [Unknown]
  - Drug ineffective [Unknown]
  - Abdominal pain [Unknown]
  - Nausea [Unknown]

NARRATIVE: CASE EVENT DATE: 2015
